FAERS Safety Report 12662317 (Version 1)
Quarter: 2016Q3

REPORT INFORMATION
  Report Type: Report from Study
  Country: US (occurrence: US)
  Receive Date: 20160817
  Receipt Date: 20160817
  Transmission Date: 20161109
  Serious: Yes (Hospitalization)
  Sender: FDA-Public Use
  Company Number: US-EXELIXIS-CABO-16006864

PATIENT
  Sex: Male

DRUGS (7)
  1. COMETRIQ [Suspect]
     Active Substance: CABOZANTINIB S-MALATE
     Dosage: 40 MG, QD
     Route: 048
     Dates: start: 201605, end: 201608
  2. TYLENOL [Concomitant]
     Active Substance: ACETAMINOPHEN
  3. FENTANYL. [Concomitant]
     Active Substance: FENTANYL
  4. METOPROLOL. [Concomitant]
     Active Substance: METOPROLOL
  5. ZANTAC [Concomitant]
     Active Substance: RANITIDINE HYDROCHLORIDE
  6. COMETRIQ [Suspect]
     Active Substance: CABOZANTINIB S-MALATE
     Indication: RENAL CANCER
     Dosage: 60 MG, QD
     Route: 048
     Dates: start: 20160414, end: 201605
  7. XGEVA [Concomitant]
     Active Substance: DENOSUMAB

REACTIONS (3)
  - Off label use [Unknown]
  - Hospitalisation [Unknown]
  - Drug ineffective for unapproved indication [Unknown]
